FAERS Safety Report 23526470 (Version 1)
Quarter: 2024Q1

REPORT INFORMATION
  Report Type: Spontaneous
  Country: US (occurrence: None)
  Receive Date: 20240214
  Receipt Date: 20240214
  Transmission Date: 20240410
  Serious: Yes (Death)
  Sender: FDA-Public Use
  Company Number: None

PATIENT
  Age: 74 Year
  Sex: Female

DRUGS (1)
  1. AMBRISENTAN [Suspect]
     Active Substance: AMBRISENTAN

REACTIONS (6)
  - Chronic hepatic failure [None]
  - Hepatic cirrhosis [None]
  - Encephalopathy [None]
  - Thrombocytopenia [None]
  - Ascites [None]
  - Pulmonary arterial hypertension [None]

NARRATIVE: CASE EVENT DATE: 20230809
